FAERS Safety Report 12522485 (Version 2)
Quarter: 2016Q3

REPORT INFORMATION
  Report Type: Spontaneous
  Country: BE (occurrence: BE)
  Receive Date: 20160701
  Receipt Date: 20160721
  Transmission Date: 20161109
  Serious: Yes (Other)
  Sender: FDA-Public Use
  Company Number: PHHY2016BE088601

PATIENT
  Age: 63 Year
  Sex: Male

DRUGS (1)
  1. COSENTYX [Suspect]
     Active Substance: SECUKINUMAB
     Indication: PSORIASIS
     Dosage: 300 MG, UNK
     Route: 058
     Dates: start: 20151214, end: 2016

REACTIONS (1)
  - Pancreatic carcinoma [Unknown]

NARRATIVE: CASE EVENT DATE: 201604
